FAERS Safety Report 9746202 (Version 1)
Quarter: 2013Q4

REPORT INFORMATION
  Report Type: Spontaneous
  Country: US (occurrence: None)
  Receive Date: 20131209
  Receipt Date: 20131209
  Transmission Date: 20140711
  Serious: Yes (Hospitalization)
  Sender: FDA-Public Use
  Company Number: None

PATIENT
  Age: 78 Year
  Sex: Female
  Weight: 82.56 kg

DRUGS (1)
  1. IRBESARTAN [Suspect]
     Indication: HYPERTENSION
     Route: 048
     Dates: start: 20131206, end: 20131206

REACTIONS (8)
  - Dizziness [None]
  - Hyperhidrosis [None]
  - Rash [None]
  - Urticaria [None]
  - Chest discomfort [None]
  - Dyspnoea [None]
  - Dysphonia [None]
  - Swelling face [None]
